FAERS Safety Report 9358564 (Version 1)
Quarter: 2013Q2

REPORT INFORMATION
  Report Type: Spontaneous
  Country: FR (occurrence: FR)
  Receive Date: 20130620
  Receipt Date: 20130620
  Transmission Date: 20140414
  Serious: Yes (Other)
  Sender: FDA-Public Use
  Company Number: FR-MERCK-1306FRA006414

PATIENT
  Age: 69 Year
  Sex: Male

DRUGS (3)
  1. HYZAAR 50 MG/12,5 MG, COMPRIM? PELLICUL? [Suspect]
     Dosage: 1 DF, QD
     Route: 048
     Dates: start: 20120917, end: 201212
  2. COZAAR 100MG, COMPRIM? PELLICUL? [Suspect]
     Dosage: 1 DF, QD
     Route: 048
     Dates: start: 201212, end: 201302
  3. COVERSYL (PERINDOPRIL ARGININE) [Suspect]
     Dosage: 1 DF, QD
     Route: 048
     Dates: start: 201302

REACTIONS (1)
  - Drug eruption [Unknown]
